FAERS Safety Report 7298862-6 (Version None)
Quarter: 2011Q1

REPORT INFORMATION
  Report Type: 
  Country: None (occurrence: None)
  Receive Date: 20110209
  Receipt Date: 20110126
  Transmission Date: 20110831
  Serious: Yes (Hospitalization)
  Sender: FDA-Public Use
  Company Number: 003576

PATIENT
  Sex: Female

DRUGS (18)
  1. LOXOPROFEN SODIUM [Concomitant]
  2. RABEPRAZOLE SODIUM [Concomitant]
  3. MOSAPRIDE [Concomitant]
  4. KETOPROFEN [Concomitant]
  5. METHOTREXATE [Concomitant]
  6. DICLOFENAC [Concomitant]
  7. FOLIC ACID [Concomitant]
  8. BETAMETHASONE [Concomitant]
  9. REBAMIPIDE [Concomitant]
  10. SCOPOLAMINE [Concomitant]
  11. CELECOXIB [Concomitant]
  12. VALPROATE SODIUM [Concomitant]
  13. TIQUIZIUM BROMIDE [Concomitant]
  14. PREDNISOLONE [Concomitant]
  15. CERTOLIZUMAB PEGOL (CERTOLIZUMAB PEGOL) [Suspect]
     Indication: RHEUMATOID ARTHRITIS
     Dosage: (SUBCUTANEOUS) ; (SUBCUTANEOUS)
     Route: 058
     Dates: start: 20100722, end: 20100101
  16. CERTOLIZUMAB PEGOL (CERTOLIZUMAB PEGOL) [Suspect]
     Indication: RHEUMATOID ARTHRITIS
     Dosage: (SUBCUTANEOUS) ; (SUBCUTANEOUS)
     Route: 058
     Dates: start: 20091001, end: 20100527
  17. CANDESARTAN CILEXETIL [Concomitant]
  18. ISONIAZID [Concomitant]

REACTIONS (12)
  - SWELLING FACE [None]
  - ARTHRALGIA [None]
  - MENINGIOMA SURGERY [None]
  - FALL [None]
  - CONTUSION [None]
  - ACCIDENT [None]
  - BACK PAIN [None]
  - TUMOUR NECROSIS [None]
  - BRAIN OEDEMA [None]
  - GAIT DISTURBANCE [None]
  - WOUND COMPLICATION [None]
  - CONSTIPATION [None]
